FAERS Safety Report 5655012-7 (Version None)
Quarter: 2008Q1

REPORT INFORMATION
  Report Type: 
  Country: None (occurrence: None)
  Receive Date: 20080307
  Receipt Date: 20071022
  Transmission Date: 20080703
  Serious: No
  Sender: FDA-Public Use
  Company Number: A0688947A

PATIENT
  Age: 53 Year
  Sex: Male

DRUGS (7)
  1. REQUIP [Suspect]
     Indication: RESTLESS LEGS SYNDROME
     Dosage: 1MG PER DAY
     Route: 048
     Dates: start: 20070401
  2. IMDUR [Concomitant]
  3. ASPIRIN [Concomitant]
  4. METOPROLOL TARTRATE [Concomitant]
  5. SANCTURA [Concomitant]
  6. MULTIPLE MEDICATIONS [Concomitant]
  7. SLEEP AID [Concomitant]

REACTIONS (3)
  - INSOMNIA [None]
  - MUSCLE SPASMS [None]
  - RESTLESS LEGS SYNDROME [None]
